FAERS Safety Report 16035297 (Version 2)
Quarter: 2020Q2

REPORT INFORMATION
  Report Type: Spontaneous
  Country: US (occurrence: US)
  Receive Date: 20190305
  Receipt Date: 20200609
  Transmission Date: 20200713
  Serious: No
  Sender: FDA-Public Use
  Company Number: US-SA-2019SA059384

PATIENT

DRUGS (2)
  1. PRALUENT [Suspect]
     Active Substance: ALIROCUMAB
     Indication: TYPE IIA HYPERLIPIDAEMIA
     Dosage: 75 MG, QOW
     Route: 058
     Dates: start: 20181202, end: 20200504
  2. PRALUENT [Suspect]
     Active Substance: ALIROCUMAB
     Indication: BLOOD CHOLESTEROL ABNORMAL
     Dosage: 75 MG, QOW
     Route: 058
     Dates: start: 20200529

REACTIONS (7)
  - Muscular weakness [Recovering/Resolving]
  - Muscle fatigue [Unknown]
  - Dyspnoea [Recovered/Resolved]
  - Lung disorder [Recovered/Resolved]
  - Nasopharyngitis [Unknown]
  - Arthralgia [Unknown]
  - Feeling abnormal [Unknown]

NARRATIVE: CASE EVENT DATE: 201902
